FAERS Safety Report 7707979-0 (Version None)
Quarter: 2011Q3

REPORT INFORMATION
  Report Type: 
  Country: None (occurrence: None)
  Receive Date: 20110824
  Receipt Date: 20110722
  Transmission Date: 20111222
  Serious: Yes (Death)
  Sender: FDA-Public Use
  Company Number: PHHY2011US06562

PATIENT
  Sex: Male
  Weight: 97.506 kg

DRUGS (1)
  1. EXJADE [Suspect]
     Indication: MYELODYSPLASTIC SYNDROME
     Dosage: 2000 MG DAILY
     Route: 048
     Dates: start: 20100218

REACTIONS (2)
  - DEATH [None]
  - FATIGUE [None]
